FAERS Safety Report 7746282-X (Version None)
Quarter: 2011Q3

REPORT INFORMATION
  Report Type: 
  Country: None (occurrence: None)
  Receive Date: 20110913
  Receipt Date: 20110907
  Transmission Date: 20111222
  Serious: Yes (Other)
  Sender: FDA-Public Use
  Company Number: KR-SANOFI-AVENTIS-2011SA058039

PATIENT
  Age: 52 Year
  Sex: Female

DRUGS (7)
  1. LEUCOVORIN CALCIUM [Concomitant]
  2. FLUOROURACIL [Concomitant]
  3. OXALIPLATIN [Suspect]
     Route: 065
  4. OXALIPLATIN [Suspect]
     Route: 065
  5. OXALIPLATIN [Suspect]
     Route: 065
  6. FLUOROURACIL [Concomitant]
     Dosage: 10 CYCLES
  7. LEUCOVORIN CALCIUM [Concomitant]

REACTIONS (2)
  - POSTERIOR REVERSIBLE ENCEPHALOPATHY SYNDROME [None]
  - GRAND MAL CONVULSION [None]
